FAERS Safety Report 6631315-4 (Version None)
Quarter: 2010Q1

REPORT INFORMATION
  Report Type: 
  Country: None (occurrence: None)
  Receive Date: 20100312
  Receipt Date: 20100309
  Transmission Date: 20100710
  Serious: Yes (Hospitalization, Other)
  Sender: FDA-Public Use
  Company Number: US-ASTRAZENECA-2009SE25294

PATIENT
  Age: 20482 Day
  Sex: Female
  Weight: 77.1 kg

DRUGS (6)
  1. SEROQUEL [Suspect]
     Indication: SCHIZOPHRENIA
     Dosage: 25 MG 2 X PM
     Route: 048
     Dates: start: 20031101
  2. SEROQUEL [Suspect]
     Indication: DEPRESSION
     Dosage: 25 MG 2 X PM
     Route: 048
     Dates: start: 20031101
  3. CYCLOBENZAPRINE [Concomitant]
     Indication: DEPRESSION
     Dates: start: 20030101
  4. TRAZODONE HCL [Concomitant]
     Indication: ANXIETY
     Dates: start: 20030101
  5. MIRTAZAPINE [Concomitant]
  6. CLONAZEPAM [Concomitant]

REACTIONS (8)
  - BACK DISORDER [None]
  - BLOOD CHOLESTEROL INCREASED [None]
  - BLOOD TRIGLYCERIDES INCREASED [None]
  - CONVULSION [None]
  - HYPERLIPIDAEMIA [None]
  - NERVOUS SYSTEM DISORDER [None]
  - PARALYSIS [None]
  - TYPE 2 DIABETES MELLITUS [None]
